FAERS Safety Report 4796702-8 (Version None)
Quarter: 2005Q4

REPORT INFORMATION
  Report Type: 
  Country: None (occurrence: None)
  Receive Date: 20051003
  Receipt Date: 20041007
  Transmission Date: 20060501
  Serious: Yes (Other)
  Sender: FDA-Public Use
  Company Number: PHEH2004US10794

PATIENT
  Sex: Female

DRUGS (5)
  1. ESTALIS COMBIPATCH (NORETHISTERONE ACETATE, ESTRADIOL) TRANS-THERAPEUT [Suspect]
     Dosage: TRANSDERMAL
     Route: 062
  2. ESTRATEST [Suspect]
  3. PREMARIN [Suspect]
  4. PREMPRO [Suspect]
  5. PROVERA [Suspect]

REACTIONS (3)
  - BREAST CANCER [None]
  - EMOTIONAL DISTRESS [None]
  - PAIN [None]
